FAERS Safety Report 8012285-3 (Version None)
Quarter: 2011Q4

REPORT INFORMATION
  Report Type: 
  Country: None (occurrence: None)
  Receive Date: 20111228
  Receipt Date: 20111223
  Transmission Date: 20120403
  Serious: Yes (Hospitalization, Other)
  Sender: FDA-Public Use
  Company Number: US-PFIZER INC-2011312811

PATIENT
  Sex: Female
  Weight: 92.971 kg

DRUGS (2)
  1. IBUPROFEN (ADVIL) [Suspect]
     Indication: HEADACHE
     Dosage: UNK
     Route: 048
  2. IBUPROFEN (ADVIL) [Suspect]
     Dosage: 400 MG, DAILY
     Route: 048
     Dates: start: 20111201, end: 20111201

REACTIONS (1)
  - MYOCARDIAL INFARCTION [None]
